FAERS Safety Report 16308751 (Version 2)
Quarter: 2019Q2

REPORT INFORMATION
  Report Type: Spontaneous
  Country: US (occurrence: US)
  Receive Date: 20190514
  Receipt Date: 20190621
  Transmission Date: 20190711
  Serious: No
  Sender: FDA-Public Use
  Company Number: US-PFIZER INC-2019198400

PATIENT
  Sex: Female

DRUGS (1)
  1. ADVIL PM [Suspect]
     Active Substance: DIPHENHYDRAMINE CITRATE\IBUPROFEN
     Indication: ARTHRITIS
     Dosage: 2 DF, 1X/DAY
     Route: 048

REACTIONS (3)
  - Product physical issue [Recovered/Resolved]
  - Poor quality product administered [Recovered/Resolved]
  - Therapeutic product effect incomplete [Unknown]
